FAERS Safety Report 10151107 (Version 1)
Quarter: 2014Q2

REPORT INFORMATION
  Report Type: Spontaneous
  Country: CN (occurrence: CN)
  Receive Date: 20140502
  Receipt Date: 20140502
  Transmission Date: 20141212
  Serious: Yes (Other)
  Sender: FDA-Public Use
  Company Number: CN-ABBVIE-14P-035-1232564-00

PATIENT
  Age: 53 Year
  Sex: Male

DRUGS (2)
  1. DEPAKINE [Suspect]
     Indication: AFFECT LABILITY
     Route: 048
     Dates: start: 20130801, end: 20131129
  2. QUETIAPINE FUMARATE [Suspect]
     Indication: PRODUCT USED FOR UNKNOWN INDICATION

REACTIONS (1)
  - Toxic encephalopathy [Recovering/Resolving]
